FAERS Safety Report 9682544 (Version 3)
Quarter: 2013Q4

REPORT INFORMATION
  Report Type: Spontaneous
  Country: PT (occurrence: PT)
  Receive Date: 20131112
  Receipt Date: 20131211
  Transmission Date: 20140711
  Serious: Yes (Disabling)
  Sender: FDA-Public Use
  Company Number: PT-AMGEN-PRTSP2013079577

PATIENT
  Age: 32 Year
  Sex: Female

DRUGS (6)
  1. ENBREL [Suspect]
     Indication: RHEUMATOID ARTHRITIS
     Dosage: 50 MG, WEEKLY
     Route: 058
     Dates: start: 201301
  2. ENBREL [Suspect]
     Dosage: 50 MG, WEEKLY
     Route: 058
  3. ENBREL [Suspect]
     Dosage: 50 MG, WEEKLY
     Route: 058
     Dates: end: 201308
  4. ETORICOXIB [Concomitant]
     Dosage: 60 MG, AS NEEDED
     Route: 048
  5. CALCITAB D [Concomitant]
     Dosage: 1 DF, 1X/DAY
     Route: 048
  6. DESLORATADINE [Concomitant]
     Dosage: UNK, AS NEEDED
     Route: 048

REACTIONS (1)
  - Diarrhoea [Recovered/Resolved]
